FAERS Safety Report 21524056 (Version 1)
Quarter: 2022Q4

REPORT INFORMATION
  Report Type: Spontaneous
  Country: CN (occurrence: CN)
  Receive Date: 20221029
  Receipt Date: 20221029
  Transmission Date: 20230113
  Serious: Yes (Other)
  Sender: FDA-Public Use
  Company Number: None

PATIENT
  Age: 50 Year
  Sex: Female
  Weight: 62 kg

DRUGS (6)
  1. CYCLOPHOSPHAMIDE [Suspect]
     Active Substance: CYCLOPHOSPHAMIDE
     Indication: Breast cancer female
     Dosage: 950 MG, QD ( DILUTED WITH 50ML NS)
     Route: 042
     Dates: start: 20220914, end: 20220914
  2. CYCLOPHOSPHAMIDE [Suspect]
     Active Substance: CYCLOPHOSPHAMIDE
     Indication: Chemotherapy
  3. SODIUM CHLORIDE [Suspect]
     Active Substance: SODIUM CHLORIDE
     Indication: Medication dilution
     Dosage: ONCE DAILY, 50 ML USED TO DILUTE 950MG CYCLOPHOSPHAMIDE
     Route: 042
     Dates: start: 20220914, end: 20220914
  4. SODIUM CHLORIDE [Suspect]
     Active Substance: SODIUM CHLORIDE
     Dosage: ONCE DAILY, 100 ML USED TO DILUTE 135 MG PHARMORUBICIN.
     Route: 041
     Dates: start: 20220914, end: 20220914
  5. EPIRUBICIN [Suspect]
     Active Substance: EPIRUBICIN
     Indication: Breast cancer female
     Dosage: 135 MG, ONCE DAILY, DILUTED WITH 100 ML OF SODIUM CHLORIDE.
     Route: 041
     Dates: start: 20220914, end: 20220914
  6. EPIRUBICIN [Suspect]
     Active Substance: EPIRUBICIN
     Indication: Chemotherapy

REACTIONS (2)
  - White blood cell count decreased [Recovered/Resolved]
  - Agranulocytosis [Recovered/Resolved]

NARRATIVE: CASE EVENT DATE: 20220923
